FAERS Safety Report 8857507 (Version 1)
Quarter: 2012Q4

REPORT INFORMATION
  Report Type: 
  Country: CA (occurrence: CA)
  Receive Date: 20121024
  Receipt Date: 20121024
  Transmission Date: 20130627
  Serious: Yes (Other)
  Sender: FDA-Public Use
  Company Number: CA-009507513-1206USA02191

PATIENT
  Age: 48 Year
  Sex: Male

DRUGS (16)
  1. ISENTRESS [Suspect]
     Indication: HIV TEST
     Dosage: 400 mg, bid
     Route: 048
  2. ACYCLOVIR [Concomitant]
  3. ANDROGEL [Concomitant]
  4. CESAMET [Concomitant]
  5. CYMBALTA [Concomitant]
  6. DERMOVATE [Concomitant]
  7. ENSURE PLUS [Concomitant]
  8. FENTANYL [Concomitant]
  9. LOCACORTEN VIOFORM [Concomitant]
  10. LEVOMEPROMAZINE [Concomitant]
  11. MS CONTIN [Concomitant]
  12. REYATAZ [Concomitant]
  13. VIAGRA [Concomitant]
  14. CYANOCOBALAMIN [Concomitant]
  15. VOLTAREN SR [Concomitant]
  16. NIZORAL [Concomitant]

REACTIONS (3)
  - Blood creatine phosphokinase increased [Recovered/Resolved]
  - Pain [Unknown]
  - Muscle fatigue [Unknown]
